FAERS Safety Report 6408122-0 (Version None)
Quarter: 2009Q4

REPORT INFORMATION
  Report Type: 
  Country: None (occurrence: None)
  Receive Date: 20091019
  Receipt Date: 20091006
  Transmission Date: 20100525
  Serious: No
  Sender: FDA-Public Use
  Company Number: A-US2009-27702

PATIENT
  Age: 63 Year
  Sex: Male
  Weight: 87.5 kg

DRUGS (12)
  1. TRACLEER [Suspect]
     Indication: PULMONARY ARTERIAL HYPERTENSION
     Dosage: 62.5 MG, BID, ORAL; 125 MG, BID, ORAL; 62.5 MG, BID, ORAL
     Route: 048
     Dates: start: 20090601, end: 20090723
  2. TRACLEER [Suspect]
     Indication: PULMONARY ARTERIAL HYPERTENSION
     Dosage: 62.5 MG, BID, ORAL; 125 MG, BID, ORAL; 62.5 MG, BID, ORAL
     Route: 048
     Dates: start: 20090724
  3. OXYCONTIN [Concomitant]
  4. VICODIN [Concomitant]
  5. COZAA4R (LOSARTAN POTASSIUM) [Concomitant]
  6. N-ACETYLCTSTEINE (ACETYLCYSTEINE) [Concomitant]
  7. IMURAN [Concomitant]
  8. LISINOPRIL [Concomitant]
  9. TRIAMTERENE (TRAIMTERNE) [Concomitant]
  10. PRILOSEC [Concomitant]
  11. IRON (IRON) [Concomitant]
  12. VITAMIN B12 [Concomitant]

REACTIONS (3)
  - EPISTAXIS [None]
  - LIVER FUNCTION TEST ABNORMAL [None]
  - NASAL POLYPS [None]
